FAERS Safety Report 18034033 (Version 1)
Quarter: 2020Q3

REPORT INFORMATION
  Report Type: Spontaneous
  Country: US (occurrence: US)
  Receive Date: 20200716
  Receipt Date: 20200716
  Transmission Date: 20201103
  Serious: Yes (Other)
  Sender: FDA-Public Use
  Company Number: US-ASTRAZENECA-2020SE86655

PATIENT
  Age: 75 Year
  Sex: Female
  Weight: 72.6 kg

DRUGS (17)
  1. LOSARTAN POTASSIUM. [Concomitant]
     Active Substance: LOSARTAN POTASSIUM
  2. AMLODIPINE BESYLATE. [Concomitant]
     Active Substance: AMLODIPINE BESYLATE
  3. POTASSIUM [Concomitant]
     Active Substance: POTASSIUM
     Dates: start: 1981
  4. OMEPRAZOLE. [Suspect]
     Active Substance: OMEPRAZOLE
     Indication: GASTROOESOPHAGEAL REFLUX DISEASE
     Route: 048
     Dates: start: 202003, end: 20200518
  5. OMEPRAZOLE. [Suspect]
     Active Substance: OMEPRAZOLE
     Indication: GASTROOESOPHAGEAL REFLUX DISEASE
     Route: 048
     Dates: start: 20200519
  6. ROSUVASTATIN CALCIUM. [Concomitant]
     Active Substance: ROSUVASTATIN CALCIUM
  7. LEVAQUIN [Suspect]
     Active Substance: LEVOFLOXACIN
     Indication: INFECTION
     Dosage: 750.0MG UNKNOWN
     Route: 065
     Dates: start: 202004
  8. IBUPROFEN. [Concomitant]
     Active Substance: IBUPROFEN
  9. VITAMIND D3 [Concomitant]
  10. VALACYCLOVIR HCL [Concomitant]
     Active Substance: VALACYCLOVIR HYDROCHLORIDE
  11. GLUCOSAMINE WITH MSMS [Concomitant]
  12. CALCIUM [Concomitant]
     Active Substance: CALCIUM
  13. IMVEXXY [Suspect]
     Active Substance: ESTRADIOL
     Indication: ATROPHIC VULVOVAGINITIS
     Route: 065
     Dates: start: 20191106, end: 202005
  14. IMVEXXY [Suspect]
     Active Substance: ESTRADIOL
     Indication: ATROPHIC VULVOVAGINITIS
     Route: 065
     Dates: start: 20190611
  15. IMVEXXY [Suspect]
     Active Substance: ESTRADIOL
     Indication: URINARY TRACT INFECTION
     Route: 065
     Dates: start: 20190611
  16. IMVEXXY [Suspect]
     Active Substance: ESTRADIOL
     Indication: URINARY TRACT INFECTION
     Route: 065
     Dates: start: 20191106, end: 202005
  17. LEVAQUIN [Suspect]
     Active Substance: LEVOFLOXACIN
     Indication: PLEURAL EFFUSION
     Dosage: 750.0MG UNKNOWN
     Route: 065
     Dates: start: 202004

REACTIONS (19)
  - Hordeolum [Recovered/Resolved]
  - Off label use [Recovered/Resolved]
  - Joint swelling [Recovered/Resolved]
  - Asthenia [Unknown]
  - Middle insomnia [Unknown]
  - Peripheral swelling [Recovered/Resolved]
  - Venous thrombosis limb [Unknown]
  - Infection [Unknown]
  - Pain in extremity [Recovering/Resolving]
  - Back pain [Recovering/Resolving]
  - White blood cell count increased [Unknown]
  - Fatigue [Unknown]
  - Muscular weakness [Recovering/Resolving]
  - Confusional state [Unknown]
  - Flank pain [Recovering/Resolving]
  - Gastrooesophageal reflux disease [Recovering/Resolving]
  - Arthralgia [Unknown]
  - Pleural effusion [Recovering/Resolving]
  - Musculoskeletal chest pain [Recovering/Resolving]

NARRATIVE: CASE EVENT DATE: 20190611
